FAERS Safety Report 21120964 (Version 1)
Quarter: 2022Q3

REPORT INFORMATION
  Report Type: Report from Study
  Country: US (occurrence: US)
  Receive Date: 20220722
  Receipt Date: 20220722
  Transmission Date: 20221026
  Serious: No
  Sender: FDA-Public Use
  Company Number: US-MIRM-000405

PATIENT
  Sex: Male

DRUGS (6)
  1. LIVMARLI [Suspect]
     Active Substance: MARALIXIBAT CHLORIDE
     Indication: Alagille syndrome
     Route: 048
     Dates: start: 2022
  2. 1328139 (GLOBALC3Sep19): Rifampin [Concomitant]
     Indication: Product used for unknown indication
  3. 1328870 (GLOBALC3Sep19): Vitamin D [Concomitant]
     Indication: Product used for unknown indication
  4. 1262333 (GLOBALC3Sep19): Aspirin [Concomitant]
     Indication: Alagille syndrome
     Route: 048
  5. 1328777 (GLOBALC3Sep19): Ursodio [Concomitant]
     Indication: Product used for unknown indication
  6. 3894842 (GLOBALC3Sep19): Sodium citrate [Concomitant]
     Indication: Product used for unknown indication

REACTIONS (2)
  - Rash [Unknown]
  - Rash [Unknown]
